FAERS Safety Report 7707376-8 (Version None)
Quarter: 2011Q3

REPORT INFORMATION
  Report Type: 
  Country: None (occurrence: None)
  Receive Date: 20110824
  Receipt Date: 20110811
  Transmission Date: 20111222
  Serious: No
  Sender: FDA-Public Use
  Company Number: US-B.I. PHARMACEUTICALS,INC./RIDGEFIELD-2011-BP-19733BP

PATIENT
  Sex: Female

DRUGS (1)
  1. PRADAXA [Suspect]

REACTIONS (7)
  - CONTUSION [None]
  - HEADACHE [None]
  - ASTHENIA [None]
  - SWELLING [None]
  - DIZZINESS [None]
  - PAIN [None]
  - ARTHRALGIA [None]
